FAERS Safety Report 4695500-3 (Version None)
Quarter: 2005Q2

REPORT INFORMATION
  Report Type: 
  Country: None (occurrence: None)
  Receive Date: 20050620
  Receipt Date: 20050620
  Transmission Date: 20051028
  Serious: No
  Sender: FDA-Public Use
  Company Number: None

PATIENT
  Age: 72 Year
  Sex: Male
  Weight: 95.2554 kg

DRUGS (3)
  1. LISINOPRIL [Suspect]
     Indication: ANGIOTENSIN CONVERTING ENZYME
     Dosage: 10 MG/DAILY ORALLY
     Route: 048
     Dates: start: 20050227, end: 20050328
  2. LISINOPRIL [Suspect]
     Indication: PROPHYLAXIS
     Dosage: 10 MG/DAILY ORALLY
     Route: 048
     Dates: start: 20050227, end: 20050328
  3. LISINOPRIL [Suspect]
     Indication: RENAL DISORDER
     Dosage: 10 MG/DAILY ORALLY
     Route: 048
     Dates: start: 20050227, end: 20050328

REACTIONS (4)
  - ASTHENIA [None]
  - COUGH [None]
  - FATIGUE [None]
  - HEADACHE [None]
